FAERS Safety Report 13260724 (Version 1)
Quarter: 2017Q1

REPORT INFORMATION
  Report Type: Spontaneous
  Country: US (occurrence: US)
  Receive Date: 20170221
  Receipt Date: 20170221
  Transmission Date: 20170428
  Serious: Yes (Life-Threatening)
  Sender: FDA-Public Use
  Company Number: None

PATIENT
  Age: 60 Year
  Sex: Male
  Weight: 69.3 kg

DRUGS (11)
  1. INTELENCE [Concomitant]
     Active Substance: ETRAVIRINE
  2. MULTI-VITAMIN [Concomitant]
     Active Substance: .ALPHA.-TOCOPHEROL ACETATE, DL-\ASCORBIC ACID\CYANOCOBALAMIN\FLUORIDE ION\FOLIC ACID\NIACIN\PYRIDOXINE\RIBOFLAVIN\THIAMINE\VITAMIN A\VITAMIN D
  3. ISENTRESS [Concomitant]
     Active Substance: RALTEGRAVIR POTASSIUM
  4. GLIMEPIRIDE. [Concomitant]
     Active Substance: GLIMEPIRIDE
  5. SYNTHROID [Concomitant]
     Active Substance: LEVOTHYROXINE SODIUM
  6. SELZENTRY [Concomitant]
     Active Substance: MARAVIROC
  7. VITAMIN C [Concomitant]
     Active Substance: ASCORBIC ACID
  8. TRESIBA [Concomitant]
     Active Substance: INSULIN DEGLUDEC
  9. PIOGLITAZONE. [Concomitant]
     Active Substance: PIOGLITAZONE
  10. TRULICITY [Suspect]
     Active Substance: DULAGLUTIDE
     Indication: PRODUCT USED FOR UNKNOWN INDICATION
     Dosage: QUANTITY:1 SOLO STAR PEN;OTHER FREQUENCY:1 INJECTION /WEEK;OTHER ROUTE:INJECTED ABDOMINAL AREA?
     Dates: start: 20170210, end: 20170210
  11. JANUMET [Concomitant]
     Active Substance: METFORMIN HYDROCHLORIDE\SITAGLIPTIN PHOSPHATE

REACTIONS (10)
  - Weight decreased [None]
  - Nausea [None]
  - Pulmonary congestion [None]
  - Vomiting [None]
  - Decreased appetite [None]
  - Asthenia [None]
  - Chills [None]
  - Dyspnoea [None]
  - Diarrhoea [None]
  - Dyspepsia [None]

NARRATIVE: CASE EVENT DATE: 20170210
